FAERS Safety Report 8386935-6 (Version None)
Quarter: 2012Q2

REPORT INFORMATION
  Report Type: 
  Country: None (occurrence: None)
  Receive Date: 20120525
  Receipt Date: 20120516
  Transmission Date: 20120825
  Serious: Yes (Hospitalization)
  Sender: FDA-Public Use
  Company Number: CA-JNJFOC-20120203932

PATIENT
  Sex: Female
  Weight: 68 kg

DRUGS (5)
  1. REMICADE [Suspect]
     Route: 042
     Dates: start: 20110627
  2. REMICADE [Suspect]
     Indication: CROHN'S DISEASE
     Route: 042
     Dates: end: 20120516
  3. REMICADE [Suspect]
     Route: 042
     Dates: start: 20111229
  4. ALL OTHER THERAPEUTICS [Concomitant]
     Route: 065
  5. TINZAPARIN [Concomitant]
     Route: 065

REACTIONS (4)
  - COLECTOMY [None]
  - VOMITING [None]
  - NAUSEA [None]
  - ABDOMINAL PAIN [None]
